FAERS Safety Report 6167642-7 (Version None)
Quarter: 2009Q2

REPORT INFORMATION
  Report Type: 
  Country: None (occurrence: None)
  Receive Date: 20090424
  Receipt Date: 20090416
  Transmission Date: 20091009
  Serious: Yes (Other)
  Sender: FDA-Public Use
  Company Number: PHHO2007NZ07845

PATIENT
  Sex: Male
  Weight: 99 kg

DRUGS (5)
  1. ZOLEDRONIC ACID [Suspect]
     Indication: METASTASES TO BONE
     Dosage: 4MG EVERY 4 WEEKS
     Route: 042
     Dates: start: 20051017, end: 20070330
  2. CALCIUM [Concomitant]
  3. DOXAZOSIN MESYLATE [Concomitant]
     Indication: HYPERTENSION
  4. OMEPRAZOLE [Concomitant]
     Indication: GASTROOESOPHAGEAL REFLUX DISEASE
  5. ACCUPRIL [Concomitant]
     Indication: HYPERTENSION

REACTIONS (6)
  - OSTEONECROSIS [None]
  - PERIODONTAL DISEASE [None]
  - TOOTH ABSCESS [None]
  - TOOTH EXTRACTION [None]
  - TOOTH FRACTURE [None]
  - TOOTH INFECTION [None]
